FAERS Safety Report 7355215-X (Version None)
Quarter: 2011Q1

REPORT INFORMATION
  Report Type: 
  Country: None (occurrence: None)
  Receive Date: 20110316
  Receipt Date: 20090402
  Transmission Date: 20110831
  Serious: Yes (Other)
  Sender: FDA-Public Use
  Company Number: US-PFIZER INC-2009158005

PATIENT
  Sex: Male
  Weight: 72.109 kg

DRUGS (8)
  1. ALKA-SELTZER [Concomitant]
     Dosage: UNK
  2. MULTI-VITAMINS [Concomitant]
     Dosage: UNK
  3. TYLENOL-500 [Concomitant]
     Indication: INSOMNIA
     Dosage: UNK
  4. ADVIL LIQUI-GELS [Concomitant]
     Indication: INSOMNIA
     Dosage: UNK
  5. DILANTIN-125 [Suspect]
     Indication: GRAND MAL CONVULSION
     Dosage: 300 MG, 1X/DAY
     Route: 048
     Dates: start: 20070226
  6. FISH OIL [Concomitant]
     Dosage: UNK
  7. PRAVASTATIN [Concomitant]
     Indication: BLOOD CHOLESTEROL
     Dosage: UNK
  8. MILK THISTLE [Suspect]
     Indication: PROPHYLAXIS
     Dosage: UNK
     Dates: start: 20080101

REACTIONS (3)
  - HEPATIC ENZYME INCREASED [None]
  - GRAND MAL CONVULSION [None]
  - DRUG LEVEL DECREASED [None]
